FAERS Safety Report 7344998-0 (Version None)
Quarter: 2011Q1

REPORT INFORMATION
  Report Type: 
  Country: None (occurrence: None)
  Receive Date: 20110302
  Receipt Date: 20110215
  Transmission Date: 20110831
  Serious: No
  Sender: FDA-Public Use
  Company Number: 2011-00061

PATIENT
  Age: 59 Year
  Sex: Female
  Weight: 102.0593 kg

DRUGS (13)
  1. ADVAIR DISKUS 100/50 [Concomitant]
  2. PREDNISONE [Concomitant]
  3. TEKTURNA [Concomitant]
  4. INSULIN [Concomitant]
  5. ZICAM EXTREME CONGESTIONAL RELIEF [Suspect]
     Dosage: BID X 32 DAYS
     Dates: start: 20101201, end: 20110101
  6. BENICAR [Concomitant]
  7. VYTORIN [Concomitant]
  8. SPIRIVA [Concomitant]
  9. GLIMEPRIDINE [Concomitant]
  10. SINGULAIR [Concomitant]
  11. OMEPRAZOLE [Concomitant]
  12. FLOVENT [Concomitant]
  13. ALBUTEROL [Concomitant]

REACTIONS (1)
  - ANOSMIA [None]
